FAERS Safety Report 16255170 (Version 1)
Quarter: 2019Q2

REPORT INFORMATION
  Report Type: Spontaneous
  Country: PL (occurrence: PL)
  Receive Date: 20190430
  Receipt Date: 20190430
  Transmission Date: 20190711
  Serious: Yes (Other)
  Sender: FDA-Public Use
  Company Number: PL-BEH-2019101773

PATIENT
  Age: 44 Year
  Sex: Female
  Weight: 100 kg

DRUGS (6)
  1. PARACETAMOL [Concomitant]
     Active Substance: ACETAMINOPHEN
     Dosage: 1000 MG, UNK
     Route: 042
     Dates: start: 20140920, end: 20140920
  2. DEXAVEN [Concomitant]
     Active Substance: DEXAMETHASONE
     Dosage: 8 MG, UNK
     Route: 042
     Dates: start: 20140920, end: 20140920
  3. CLEMASTINUM [Concomitant]
     Active Substance: CLEMASTINE FUMARATE
     Dosage: 2 MG, UNK
     Route: 042
     Dates: start: 20140920, end: 20140920
  4. AZATHIOPRINE. [Concomitant]
     Active Substance: AZATHIOPRINE
     Indication: MYASTHENIA GRAVIS
     Dosage: 100 MG, UNK
     Route: 048
     Dates: start: 201406
  5. SANDOGLOBULIN P [Suspect]
     Active Substance: HUMAN IMMUNOGLOBULIN G
     Indication: MYASTHENIA GRAVIS
     Dosage: 6 G, UNK
     Route: 041
     Dates: start: 20140920, end: 20140920
  6. MESTINON [Concomitant]
     Active Substance: PYRIDOSTIGMINE BROMIDE
     Indication: MYASTHENIA GRAVIS
     Dosage: UNKNOWN DOSE
     Route: 048
     Dates: start: 2013

REACTIONS (3)
  - Dyspnoea [Recovered/Resolved]
  - Pyrexia [Recovered/Resolved]
  - Chills [Recovered/Resolved]

NARRATIVE: CASE EVENT DATE: 20140920
